FAERS Safety Report 8457113-7 (Version None)
Quarter: 2012Q2

REPORT INFORMATION
  Report Type: 
  Country: None (occurrence: None)
  Receive Date: 20120615
  Receipt Date: 20120614
  Transmission Date: 20120825
  Serious: Yes (Life-Threatening)
  Sender: FDA-Public Use
  Company Number: ONY-2012-004

PATIENT

DRUGS (1)
  1. INFASURF PRESERVATIVE FREE [Suspect]

REACTIONS (2)
  - HEART RATE DECREASED [None]
  - OXYGEN SATURATION DECREASED [None]
